FAERS Safety Report 8516771-9 (Version None)
Quarter: 2012Q3

REPORT INFORMATION
  Report Type: 
  Country: None (occurrence: None)
  Receive Date: 20120718
  Receipt Date: 20120713
  Transmission Date: 20120928
  Serious: Yes (Hospitalization, Other)
  Sender: FDA-Public Use
  Company Number: BR-AMGEN-BRASP2012043685

PATIENT
  Age: 56 Year
  Sex: Male
  Weight: 60 kg

DRUGS (2)
  1. CINACALCET HYDROCHLORIDE [Suspect]
     Indication: PAIN IN EXTREMITY
     Route: 048
  2. CINACALCET HYDROCHLORIDE [Suspect]
     Indication: FATIGUE

REACTIONS (1)
  - TRANSPLANT [None]
